FAERS Safety Report 5832739-5 (Version None)
Quarter: 2008Q3

REPORT INFORMATION
  Report Type: 
  Country: None (occurrence: None)
  Receive Date: 20080804
  Receipt Date: 20080729
  Transmission Date: 20090109
  Serious: Yes (Life-Threatening, Hospitalization, Other)
  Sender: FDA-Public Use
  Company Number: PHHY2008US12666

PATIENT
  Sex: Male

DRUGS (1)
  1. LIORESAL [Suspect]
     Indication: MUSCLE SPASTICITY
     Dosage: 400 MCG/DAY
     Route: 037

REACTIONS (7)
  - ASTHENIA [None]
  - COMA [None]
  - HYPOTONIA [None]
  - OVERDOSE [None]
  - PRURITUS [None]
  - RESPIRATORY DEPRESSION [None]
  - SOMNOLENCE [None]
